FAERS Safety Report 4398713-3 (Version None)
Quarter: 2004Q3

REPORT INFORMATION
  Report Type: 
  Country: None (occurrence: None)
  Receive Date: 20040712
  Receipt Date: 20040617
  Transmission Date: 20050211
  Serious: Yes (Hospitalization, Disabling)
  Sender: FDA-Public Use
  Company Number: FR_040604313

PATIENT
  Age: 40 Year
  Sex: Female

DRUGS (6)
  1. HUMALOG [Suspect]
     Indication: DIABETES MELLITUS INSULIN-DEPENDENT
     Dosage: 4 DSG FORM DAY
  2. PROGRAF [Concomitant]
  3. CELLCEPT [Concomitant]
  4. VFEND [Concomitant]
  5. AZATHIOPRINE [Concomitant]
  6. PREDNISONE TAB [Concomitant]

REACTIONS (2)
  - CHOLECYSTITIS [None]
  - CHOLELITHIASIS [None]
